FAERS Safety Report 6024167-7 (Version None)
Quarter: 2008Q4

REPORT INFORMATION
  Report Type: 
  Country: None (occurrence: None)
  Receive Date: 20081224
  Receipt Date: 20081216
  Transmission Date: 20090506
  Serious: Yes (Hospitalization)
  Sender: FDA-Public Use
  Company Number: TPG2008A01333

PATIENT
  Age: 71 Year
  Sex: Male

DRUGS (5)
  1. COMPETACT (PIOGLITAZONE HYDROCHLORIDE, METFORMIN HYDROCHLORIDE) [Suspect]
     Indication: DIABETES MELLITUS
     Dosage: PIOGLITAZONE 30 MG/METFORMIN 1700 MG PER ORAL
     Route: 048
     Dates: start: 20070101
  2. FUROHEXAL (FUROSEMIDE) [Concomitant]
  3. RIVACOR (BISOPROLOL HEMIFUMARATE) [Concomitant]
  4. CANDESARTAN CILEXETIL [Concomitant]
  5. ALLOPURINOL [Concomitant]

REACTIONS (5)
  - CARDIAC FAILURE [None]
  - HYPERKALAEMIA [None]
  - METABOLIC ACIDOSIS [None]
  - OEDEMA [None]
  - RENAL FAILURE [None]
